FAERS Safety Report 10376539 (Version 2)
Quarter: 2014Q3

REPORT INFORMATION
  Report Type: Report from Study
  Country: CA (occurrence: CA)
  Receive Date: 20140811
  Receipt Date: 20140828
  Transmission Date: 20150326
  Serious: Yes (Hospitalization)
  Sender: FDA-Public Use
  Company Number: CA-TEVA-500622USA

PATIENT
  Age: 1 Year
  Sex: Male
  Weight: 10.6 kg

DRUGS (12)
  1. ETOPOSIDE. [Suspect]
     Active Substance: ETOPOSIDE
     Dates: start: 20131112
  2. CYCLOPHOSPHAMIDE. [Suspect]
     Active Substance: CYCLOPHOSPHAMIDE
     Dates: start: 20131112
  3. CYTARABINE. [Suspect]
     Active Substance: CYTARABINE
     Route: 042
  4. VINCRISTINE [Suspect]
     Active Substance: VINCRISTINE
     Dates: start: 20131112
  5. CYTARABINE. [Suspect]
     Active Substance: CYTARABINE
     Route: 037
     Dates: start: 20131112
  6. LESTAURTINIB [Suspect]
     Active Substance: LESTAURTINIB
     Dates: start: 20131112
  7. METHOTREXATE [Suspect]
     Active Substance: METHOTREXATE
     Route: 037
     Dates: start: 20131112
  8. HYDROCORTISONE. [Suspect]
     Active Substance: HYDROCORTISONE
     Dates: start: 20131112
  9. MERCAPTOPURINE. [Suspect]
     Active Substance: MERCAPTOPURINE
     Dates: start: 20131112
  10. METHOTREXATE [Suspect]
     Active Substance: METHOTREXATE
     Route: 042
  11. DEXAMETHASONE. [Suspect]
     Active Substance: DEXAMETHASONE
     Dates: start: 20131112
  12. PEG-L-ASPARAGINASE [Suspect]
     Active Substance: PEGASPARGASE
     Dates: start: 20131112

REACTIONS (1)
  - Blood culture positive [Recovering/Resolving]

NARRATIVE: CASE EVENT DATE: 20140803
